FAERS Safety Report 8332296-8 (Version None)
Quarter: 2012Q2

REPORT INFORMATION
  Report Type: 
  Country: None (occurrence: None)
  Receive Date: 20120503
  Receipt Date: 20120426
  Transmission Date: 20120825
  Serious: No
  Sender: FDA-Public Use
  Company Number: US-BIOGENIDEC-2012BI014914

PATIENT
  Sex: Female

DRUGS (5)
  1. TYSABRI [Suspect]
     Indication: MULTIPLE SCLEROSIS
     Route: 042
     Dates: start: 20091207, end: 20100623
  2. TYSABRI [Suspect]
     Route: 042
     Dates: start: 20120425
  3. AVONEX [Concomitant]
     Route: 030
     Dates: start: 20100729
  4. AVONEX [Concomitant]
     Indication: MULTIPLE SCLEROSIS
     Route: 030
     Dates: start: 20011130
  5. AVONEX [Concomitant]
     Route: 030
     Dates: end: 20091013

REACTIONS (1)
  - FATIGUE [None]
